FAERS Safety Report 12738426 (Version 1)
Quarter: 2016Q3

REPORT INFORMATION
  Report Type: Spontaneous
  Country: US (occurrence: US)
  Receive Date: 20160912
  Receipt Date: 20160912
  Transmission Date: 20161109
  Serious: Yes (Other)
  Sender: FDA-Public Use
  Company Number: None

PATIENT
  Age: 58 Year
  Sex: Female

DRUGS (1)
  1. GAMMAGARD [Suspect]
     Active Substance: HUMAN IMMUNOGLOBULIN G
     Indication: HYPOGAMMAGLOBULINAEMIA
     Dosage: 35GMS DAILY FOR 2 DAYS EVERY 4 WEEKS
     Dates: start: 201606

REACTIONS (2)
  - Cheilitis [None]
  - Rash [None]

NARRATIVE: CASE EVENT DATE: 20160912
